FAERS Safety Report 5356420-4 (Version None)
Quarter: 2007Q2

REPORT INFORMATION
  Report Type: 
  Country: None (occurrence: None)
  Receive Date: 20070530
  Receipt Date: 20061212
  Transmission Date: 20071010
  Serious: Yes (Hospitalization)
  Sender: FDA-Public Use
  Company Number: US200609003788

PATIENT
  Age: 59 Year
  Sex: Female

DRUGS (3)
  1. ZYPREXA [Suspect]
     Dosage: 10 MG
     Dates: start: 19990101, end: 19990101
  2. SEROQUEL [Concomitant]
  3. TEGRETOL [Concomitant]

REACTIONS (4)
  - DIABETES MELLITUS [None]
  - HYPERTENSION [None]
  - PANCREATITIS [None]
  - WEIGHT INCREASED [None]
